FAERS Safety Report 14192691 (Version 1)
Quarter: 2017Q4

REPORT INFORMATION
  Report Type: Spontaneous
  Country: CN (occurrence: CN)
  Receive Date: 20171115
  Receipt Date: 20171115
  Transmission Date: 20180321
  Serious: Yes (Hospitalization)
  Sender: FDA-Public Use
  Company Number: CN-MYLANLABS-2017M1071914

PATIENT
  Age: 65 Year
  Sex: Female

DRUGS (10)
  1. SODIUM CHLORIDE. [Suspect]
     Active Substance: SODIUM CHLORIDE
     Indication: EPIDURAL ANALGESIA
     Dosage: 2ML OF 0.9%
     Route: 008
  2. LOXOPROFEN [Concomitant]
     Active Substance: LOXOPROFEN
     Indication: SPINAL OSTEOARTHRITIS
     Dosage: 60 MG, BID
     Route: 065
  3. DEXAMETHASONE. [Suspect]
     Active Substance: DEXAMETHASONE
     Indication: EPIDURAL ANALGESIA
     Dosage: 10MG
     Route: 008
  4. THIAMINE. [Suspect]
     Active Substance: THIAMINE
     Indication: EPIDURAL ANALGESIA
     Dosage: 100MG
     Route: 008
  5. MANNITOL. [Concomitant]
     Active Substance: MANNITOL
     Indication: PRODUCT USED FOR UNKNOWN INDICATION
     Dosage: 250ML OF MANNITOL 20% DAILY
     Route: 050
  6. PYRIDOXINE [Suspect]
     Active Substance: PYRIDOXINE
     Indication: EPIDURAL ANALGESIA
     Dosage: 100MG
     Route: 008
  7. MECOBALAMIN [Suspect]
     Active Substance: METHYLCOBALAMIN
     Indication: EPIDURAL ANALGESIA
     Dosage: 1MG
     Route: 008
  8. LIDOCAINE. [Suspect]
     Active Substance: LIDOCAINE
     Indication: EPIDURAL ANALGESIA
     Dosage: 5ML OF 2%
     Route: 008
  9. FAMCICLOVIR. [Concomitant]
     Active Substance: FAMCICLOVIR
     Indication: HERPES ZOSTER
     Dosage: 0.25 G, TID
     Route: 065
  10. NIFEDIPINE. [Concomitant]
     Active Substance: NIFEDIPINE
     Indication: ESSENTIAL HYPERTENSION
     Dosage: 10MG DAILY; SUSTAINED RELEASE
     Route: 065

REACTIONS (1)
  - Extradural abscess [Recovered/Resolved]
